FAERS Safety Report 6680886-0 (Version None)
Quarter: 2010Q2

REPORT INFORMATION
  Report Type: 
  Country: None (occurrence: None)
  Receive Date: 20100414
  Receipt Date: 20100408
  Transmission Date: 20101027
  Serious: Yes (Hospitalization, Other)
  Sender: FDA-Public Use
  Company Number: DE-SANOFI-AVENTIS-2010SA011052

PATIENT
  Age: 73 Year
  Sex: Male

DRUGS (5)
  1. MULTAQ [Suspect]
     Indication: ATRIAL FIBRILLATION
     Route: 048
     Dates: start: 20100216, end: 20100220
  2. DIOVAN HCT [Concomitant]
     Indication: DRUG USE FOR UNKNOWN INDICATION
     Dosage: DOSAGE: 1/2-0-0DAILY DOSE: 40/6.75 MG
     Route: 065
  3. METOPROLOL SUCCINATE [Concomitant]
     Indication: DRUG USE FOR UNKNOWN INDICATION
     Dosage: DOSAGE: 1-0-0
     Route: 065
  4. BIKALM [Concomitant]
     Indication: DRUG USE FOR UNKNOWN INDICATION
     Dosage: DOSAGE: 0-0-0-1
     Route: 065
  5. KALIUM ^VERLA^ [Concomitant]
     Indication: DRUG USE FOR UNKNOWN INDICATION
     Dosage: DOSAGE: 1-0-0
     Route: 065

REACTIONS (6)
  - ABDOMINAL DISCOMFORT [None]
  - DYSPNOEA EXERTIONAL [None]
  - HEPATOCELLULAR INJURY [None]
  - INFLAMMATION [None]
  - OEDEMA PERIPHERAL [None]
  - PULMONARY CONGESTION [None]
